FAERS Safety Report 8362580-3 (Version None)
Quarter: 2012Q1

REPORT INFORMATION
  Report Type: 
  Country: None (occurrence: None)
  Receive Date: 20120323
  Receipt Date: 20111223
  Transmission Date: 20120608
  Serious: Yes (Hospitalization, Other)
  Sender: FDA-Public Use
  Company Number: 168-21880-11123488

PATIENT
  Age: 85 Year
  Sex: Female

DRUGS (1)
  1. REVLIMID [Suspect]
     Indication: MULTIPLE MYELOMA
     Dosage: 15 MG, MONDAY, WEDNESDAY, FRIDAY, PO
     Route: 048
     Dates: start: 20111207

REACTIONS (1)
  - ANAEMIA [None]
